APPROVED DRUG PRODUCT: CEFAZOLIN SODIUM
Active Ingredient: CEFAZOLIN SODIUM
Strength: EQ 250MG BASE/VIAL
Dosage Form/Route: INJECTABLE;INJECTION
Application: A062988 | Product #001
Applicant: DR REDDYS LABORATORIES LTD
Approved: Dec 29, 1989 | RLD: No | RS: No | Type: DISCN